FAERS Safety Report 6215617-1 (Version None)
Quarter: 2009Q2

REPORT INFORMATION
  Report Type: 
  Country: None (occurrence: None)
  Receive Date: 20090605
  Receipt Date: 20071002
  Transmission Date: 20091009
  Serious: Yes (Hospitalization, Other)
  Sender: FDA-Public Use
  Company Number: US-ASTRAZENECA-2006UW23007

PATIENT
  Age: 494 Month
  Sex: Female
  Weight: 98.4 kg

DRUGS (15)
  1. SEROQUEL [Suspect]
     Indication: SCHIZOPHRENIA
     Route: 048
     Dates: start: 20000101, end: 20010101
  2. SEROQUEL [Suspect]
     Indication: DEPRESSION
     Route: 048
     Dates: start: 20000101, end: 20010101
  3. SEROQUEL [Suspect]
     Indication: BIPOLAR DISORDER
     Route: 048
     Dates: start: 20000101, end: 20010101
  4. SEROQUEL [Suspect]
     Indication: POST-TRAUMATIC STRESS DISORDER
     Route: 048
     Dates: start: 20000101, end: 20010101
  5. SEROQUEL [Suspect]
     Dosage: 50 MG-200 MG
     Route: 048
     Dates: start: 20020805
  6. SEROQUEL [Suspect]
     Dosage: 50 MG-200 MG
     Route: 048
     Dates: start: 20020805
  7. SEROQUEL [Suspect]
     Dosage: 50 MG-200 MG
     Route: 048
     Dates: start: 20020805
  8. SEROQUEL [Suspect]
     Dosage: 50 MG-200 MG
     Route: 048
     Dates: start: 20020805
  9. RISPERDAL [Concomitant]
     Dates: start: 19990101, end: 20000101
  10. PAXIL [Concomitant]
  11. DEPAKOTE [Concomitant]
  12. NICODREM [Concomitant]
  13. MAXZIDE [Concomitant]
  14. COMBIVENT [Concomitant]
  15. PREVACID [Concomitant]

REACTIONS (3)
  - CORONARY ARTERY DISEASE [None]
  - DIABETES MELLITUS [None]
  - MYOCARDIAL INFARCTION [None]
